FAERS Safety Report 18442347 (Version 4)
Quarter: 2023Q1

REPORT INFORMATION
  Report Type: Spontaneous
  Country: GB (occurrence: None)
  Receive Date: 20201029
  Receipt Date: 20230224
  Transmission Date: 20230418
  Serious: Yes (Life-Threatening, Hospitalization, Other)
  Sender: FDA-Public Use
  Company Number: GB-EMA-DD-20201013-SHAIK_I-134529

PATIENT
  Age: 29 Year
  Sex: Male

DRUGS (18)
  1. METHYLPREDNISOLONE [Suspect]
     Active Substance: METHYLPREDNISOLONE
     Indication: Autoimmune disorder
     Route: 042
     Dates: start: 20200820, end: 202008
  2. METHYLPREDNISOLONE [Suspect]
     Active Substance: METHYLPREDNISOLONE
     Indication: Partial seizures
  3. FYCOMPA [Suspect]
     Active Substance: PERAMPANEL
     Indication: Temporal lobe epilepsy
     Route: 048
     Dates: end: 202009
  4. FYCOMPA [Suspect]
     Active Substance: PERAMPANEL
     Indication: Partial seizures
     Route: 065
     Dates: start: 20200128, end: 202005
  5. FYCOMPA [Suspect]
     Active Substance: PERAMPANEL
     Dosage: UNKNOWN DOSE
     Route: 065
     Dates: start: 20200823, end: 20200823
  6. FYCOMPA [Suspect]
     Active Substance: PERAMPANEL
     Route: 065
     Dates: start: 202006, end: 202007
  7. FYCOMPA [Suspect]
     Active Substance: PERAMPANEL
     Route: 065
     Dates: start: 202007, end: 20200822
  8. FYCOMPA [Suspect]
     Active Substance: PERAMPANEL
     Route: 065
     Dates: start: 202005, end: 202006
  9. FYCOMPA [Suspect]
     Active Substance: PERAMPANEL
     Route: 065
     Dates: start: 20220128, end: 20220823
  10. CLOBAZAM [Suspect]
     Active Substance: CLOBAZAM
     Indication: Temporal lobe epilepsy
     Dosage: 10 MG IN AM, 20 MG IN PM
     Route: 048
     Dates: end: 20200822
  11. CLOBAZAM [Suspect]
     Active Substance: CLOBAZAM
     Indication: Partial seizures
     Dosage: DOSE UNKNOWN
     Route: 065
     Dates: start: 20200823, end: 20200823
  12. BRIVARACETAM [Suspect]
     Active Substance: BRIVARACETAM
     Indication: Partial seizures
     Route: 065
  13. BRIVARACETAM [Suspect]
     Active Substance: BRIVARACETAM
     Indication: Temporal lobe epilepsy
  14. METHYLPREDNISOLONE [Suspect]
     Active Substance: METHYLPREDNISOLONE
     Indication: Autoimmune disorder
     Route: 048
     Dates: start: 20200911, end: 2020
  15. PREDNISOLONE [Concomitant]
     Active Substance: PREDNISOLONE
     Indication: Partial seizures
     Dosage: UNKNOWN
     Route: 065
  16. PREDNISOLONE [Concomitant]
     Active Substance: PREDNISOLONE
     Dosage: UNKNOWN
     Route: 065
  17. ESLICARBAZEPINE [Concomitant]
     Active Substance: ESLICARBAZEPINE
     Indication: Temporal lobe epilepsy
     Dosage: 400 MG IN AM, 800 MG IN PM
     Route: 065
  18. ESLICARBAZEPINE [Concomitant]
     Active Substance: ESLICARBAZEPINE
     Indication: Partial seizures
     Dosage: UNKNOWN
     Route: 065

REACTIONS (8)
  - Suicide attempt [Recovered/Resolved]
  - Somnolence [Recovering/Resolving]
  - Mental disorder [Recovering/Resolving]
  - Hallucination [Recovering/Resolving]
  - Intentional overdose [Recovered/Resolved]
  - Suicidal ideation [Recovered/Resolved with Sequelae]
  - Psychotic disorder [Recovered/Resolved]
  - Product dose omission issue [Unknown]

NARRATIVE: CASE EVENT DATE: 20200823
